FAERS Safety Report 20411180 (Version 1)
Quarter: 2022Q1

REPORT INFORMATION
  Report Type: Spontaneous
  Country: US (occurrence: None)
  Receive Date: 20220201
  Receipt Date: 20220201
  Transmission Date: 20220424
  Serious: Yes (Other)
  Sender: FDA-Public Use
  Company Number: None

PATIENT
  Age: 32 Year
  Sex: Male
  Weight: 124.1 kg

DRUGS (2)
  1. CALCIUM GLUCONATE [Suspect]
     Active Substance: CALCIUM GLUCONATE
     Indication: Prophylaxis
     Dosage: FREQUENCY : 3 TIMES A DAY;?
     Route: 042
     Dates: start: 20210507
  2. CALCIUM CARBONATE [Suspect]
     Active Substance: CALCIUM CARBONATE
     Indication: Prophylaxis
     Dosage: OTHER FREQUENCY : WITH APHERESIS;?
     Route: 048
     Dates: start: 20220118

REACTIONS (4)
  - Abdominal discomfort [None]
  - Coagulation time prolonged [None]
  - Diarrhoea [None]
  - Blood pressure decreased [None]

NARRATIVE: CASE EVENT DATE: 20220128
